FAERS Safety Report 7171149-8 (Version None)
Quarter: 2010Q4

REPORT INFORMATION
  Report Type: 
  Country: None (occurrence: None)
  Receive Date: 20101217
  Receipt Date: 20101213
  Transmission Date: 20110411
  Serious: Yes (Other)
  Sender: FDA-Public Use
  Company Number: US-PFIZER INC-2010171490

PATIENT

DRUGS (1)
  1. SUTENT [Suspect]

REACTIONS (2)
  - MYOSITIS [None]
  - RHABDOMYOLYSIS [None]
